FAERS Safety Report 21006340 (Version 3)
Quarter: 2022Q3

REPORT INFORMATION
  Report Type: Report from Study
  Country: US (occurrence: US)
  Receive Date: 20220624
  Receipt Date: 20220805
  Transmission Date: 20221027
  Serious: Yes (Hospitalization, Other)
  Sender: FDA-Public Use
  Company Number: US-HLS-202200664

PATIENT
  Age: 64 Year
  Sex: Female

DRUGS (1)
  1. CLOZAPINE [Suspect]
     Active Substance: CLOZAPINE
     Indication: Schizophrenia
     Route: 048
     Dates: start: 2010

REACTIONS (8)
  - Brain neoplasm [Unknown]
  - Psychiatric decompensation [Unknown]
  - Dyskinesia [Unknown]
  - Patient uncooperative [Unknown]
  - Treatment noncompliance [Unknown]
  - Psychotic disorder [Unknown]
  - Dehydration [Unknown]
  - Adverse drug reaction [Unknown]

NARRATIVE: CASE EVENT DATE: 20201101
